FAERS Safety Report 7091587-1 (Version None)
Quarter: 2010Q4

REPORT INFORMATION
  Report Type: 
  Country: None (occurrence: None)
  Receive Date: 20101109
  Receipt Date: 20101028
  Transmission Date: 20110411
  Serious: Yes (Other)
  Sender: FDA-Public Use
  Company Number: DE-WATSON-2010-14362

PATIENT
  Age: 11 Year
  Sex: Female

DRUGS (2)
  1. METHYLPREDNISOLONE ACETATE [Suspect]
     Indication: SJOGREN'S SYNDROME
     Dosage: HIGH DOSES
  2. PREDNISOLONE ACETATE [Suspect]
     Indication: SJOGREN'S SYNDROME
     Dosage: 0.5 MG/KG, DAILY
     Route: 048

REACTIONS (1)
  - EPIDURAL LIPOMATOSIS [None]
